FAERS Safety Report 5225177-X (Version None)
Quarter: 2007Q1

REPORT INFORMATION
  Report Type: 
  Country: None (occurrence: None)
  Receive Date: 20070131
  Receipt Date: 20070123
  Transmission Date: 20070707
  Serious: Yes (Hospitalization)
  Sender: FDA-Public Use
  Company Number: CA-MERCK-0701CAN00174

PATIENT
  Age: 84 Year
  Sex: Female

DRUGS (2)
  1. FOSAMAX [Suspect]
     Route: 048
     Dates: start: 20050601
  2. RABEPRAZOLE SODIUM [Concomitant]
     Route: 065
     Dates: start: 20051201

REACTIONS (1)
  - HAEMORRHAGE [None]
